FAERS Safety Report 8614143-X (Version None)
Quarter: 2012Q3

REPORT INFORMATION
  Report Type: 
  Country: None (occurrence: None)
  Receive Date: 20120823
  Receipt Date: 20120813
  Transmission Date: 20120928
  Serious: Yes (Other)
  Sender: FDA-Public Use
  Company Number: CA-JNJFOC-20120213519

PATIENT
  Sex: Female
  Weight: 99 kg

DRUGS (13)
  1. REMICADE [Suspect]
     Route: 042
     Dates: start: 20120207
  2. REMICADE [Suspect]
     Route: 042
     Dates: start: 20120101
  3. REMICADE [Suspect]
     Route: 042
     Dates: start: 20120101
  4. CELEXA [Concomitant]
     Indication: DEPRESSION
     Dosage: STARTED 30 YEARS AGO
     Route: 048
     Dates: start: 19820101
  5. REMICADE [Suspect]
     Indication: COLITIS ULCERATIVE
     Route: 042
     Dates: start: 20080101
  6. REMICADE [Suspect]
     Route: 042
     Dates: start: 20120227
  7. REMICADE [Suspect]
     Indication: CROHN'S DISEASE
     Route: 042
     Dates: start: 20120227
  8. REMICADE [Suspect]
     Route: 042
     Dates: start: 20080101
  9. REMICADE [Suspect]
     Route: 042
     Dates: start: 20120207
  10. FERROUS GLUCONATE [Concomitant]
     Indication: BLOOD IRON DECREASED
     Route: 048
     Dates: start: 20120225
  11. ASACOL [Concomitant]
     Indication: COLITIS ULCERATIVE
     Route: 048
     Dates: start: 20120225
  12. ALEVE [Concomitant]
     Indication: PAIN
     Route: 048
     Dates: start: 20120201
  13. PENTASA [Concomitant]
     Indication: COLITIS ULCERATIVE
     Route: 048
     Dates: start: 20120225

REACTIONS (2)
  - ABORTION SPONTANEOUS [None]
  - MATERNAL EXPOSURE DURING PREGNANCY [None]
